FAERS Safety Report 4401047-1 (Version None)
Quarter: 2004Q3

REPORT INFORMATION
  Report Type: 
  Country: None (occurrence: None)
  Receive Date: 20040907
  Receipt Date: 20031007
  Transmission Date: 20050211
  Serious: No
  Sender: FDA-Public Use
  Company Number: US-BRISTOL-MYERS SQUIBB COMPANY-12405619

PATIENT
  Age: 77 Year
  Sex: Female
  Weight: 102 kg

DRUGS (3)
  1. COUMADIN [Suspect]
     Indication: ATRIAL FIBRILLATION
     Route: 048
  2. BEXTRA [Concomitant]
  3. MULTIVITAMIN [Concomitant]

REACTIONS (2)
  - INTERNATIONAL NORMALISED RATIO DECREASED [None]
  - MEDICATION ERROR [None]
